FAERS Safety Report 16958679 (Version 1)
Quarter: 2019Q4

REPORT INFORMATION
  Report Type: Spontaneous
  Country: HR (occurrence: HR)
  Receive Date: 20191024
  Receipt Date: 20191024
  Transmission Date: 20200122
  Serious: Yes (Other)
  Sender: FDA-Public Use
  Company Number: HR-PFIZER INC-2019453635

PATIENT
  Sex: Female

DRUGS (3)
  1. PALBOCICLIB [Suspect]
     Active Substance: PALBOCICLIB
     Indication: BREAST CANCER
     Dosage: UNK
     Dates: start: 201904, end: 201908
  2. LETROZOLE. [Suspect]
     Active Substance: LETROZOLE
     Indication: BREAST CANCER
     Dosage: UNK
  3. PALBOCICLIB [Suspect]
     Active Substance: PALBOCICLIB
     Dosage: 100 MG, UNK (REDUCED DOSE)
     Dates: start: 201908

REACTIONS (5)
  - Hyperhidrosis [Unknown]
  - Pyrexia [Unknown]
  - Granulocytopenia [Unknown]
  - Fatigue [Unknown]
  - Skin toxicity [Unknown]

NARRATIVE: CASE EVENT DATE: 201904
